FAERS Safety Report 20577133 (Version 1)
Quarter: 2022Q1

REPORT INFORMATION
  Report Type: Spontaneous
  Country: US (occurrence: None)
  Receive Date: 20220309
  Receipt Date: 20220309
  Transmission Date: 20220424
  Serious: Yes (Hospitalization)
  Sender: FDA-Public Use
  Company Number: None

PATIENT
  Age: 78 Year
  Sex: Female

DRUGS (1)
  1. AVONEX [Suspect]
     Active Substance: INTERFERON BETA-1A
     Indication: Multiple sclerosis
     Dosage: 30MCG ONCE A WEEK INTRAMUSCULAR??FROM 03/14/2022 TO CURRENT
     Route: 030

REACTIONS (1)
  - Biopsy bladder [None]

NARRATIVE: CASE EVENT DATE: 20220211
